FAERS Safety Report 5755563-0 (Version None)
Quarter: 2008Q2

REPORT INFORMATION
  Report Type: 
  Country: None (occurrence: None)
  Receive Date: 20080602
  Receipt Date: 20080529
  Transmission Date: 20081010
  Serious: Yes (Hospitalization)
  Sender: FDA-Public Use
  Company Number: US-BRISTOL-MYERS SQUIBB COMPANY-14209928

PATIENT
  Age: 83 Year
  Sex: Female

DRUGS (2)
  1. IXABEPILONE [Suspect]
     Indication: BREAST CANCER METASTATIC
     Dosage: 1ST DOSE WAS RECEIVED
     Dates: start: 20080501
  2. RADIATION THERAPY [Suspect]
     Dates: start: 20070514

REACTIONS (4)
  - HAEMOPTYSIS [None]
  - MUCOSAL INFLAMMATION [None]
  - PLATELET COUNT DECREASED [None]
  - STOMATITIS [None]
